FAERS Safety Report 23482682 (Version 1)
Quarter: 2024Q1

REPORT INFORMATION
  Report Type: Spontaneous
  Country: CN (occurrence: CN)
  Receive Date: 20240205
  Receipt Date: 20240205
  Transmission Date: 20240410
  Serious: Yes (Hospitalization, Other)
  Sender: FDA-Public Use
  Company Number: CN-AMGEN-CHNSP2024020681

PATIENT
  Age: 64 Year
  Sex: Male
  Weight: 50 kg

DRUGS (4)
  1. KYPROLIS [Suspect]
     Active Substance: CARFILZOMIB
     Indication: Product used for unknown indication
     Dosage: 30 MILLIGRAM (DAY1-2)
     Route: 065
     Dates: start: 20231208
  2. KYPROLIS [Suspect]
     Active Substance: CARFILZOMIB
     Dosage: 40 MILLIGRAM (DAY 8-9, D15-16)
     Route: 065
     Dates: end: 20231212
  3. POMALIDOMIDE [Concomitant]
     Active Substance: POMALIDOMIDE
     Indication: Product used for unknown indication
     Dosage: 4 MILLIGRAM DAY 1-21
     Route: 065
     Dates: start: 20231208
  4. DEXAMETHASONE [Concomitant]
     Active Substance: DEXAMETHASONE
     Indication: Product used for unknown indication
     Dosage: 20 MILLIGRAM (DAY 1-2, 8-9, 15-16)
     Route: 065
     Dates: start: 20231208

REACTIONS (1)
  - Myelosuppression [Recovering/Resolving]

NARRATIVE: CASE EVENT DATE: 20231229
